FAERS Safety Report 9769759 (Version 1)
Quarter: 2013Q4

REPORT INFORMATION
  Report Type: Spontaneous
  Country: US (occurrence: US)
  Receive Date: 20131218
  Receipt Date: 20131218
  Transmission Date: 20140711
  Serious: No
  Sender: FDA-Public Use
  Company Number: US-VERTEX PHARMACEUTICALS INC-AE-2011-000584

PATIENT
  Sex: 0

DRUGS (7)
  1. INCIVEK [Suspect]
     Indication: HEPATITIS C
     Dates: start: 20110717
  2. PEGASUS [Concomitant]
     Indication: HEPATITIS C
     Route: 058
     Dates: start: 20110717
  3. RIBAVIRIN [Concomitant]
     Indication: HEPATITIS C
     Route: 048
     Dates: start: 20110717
  4. VITAMIN E [Concomitant]
     Route: 048
     Dates: start: 20110717
  5. VITAMIN D [Concomitant]
     Route: 048
     Dates: start: 20110717
  6. FISH OIL [Concomitant]
     Route: 048
     Dates: start: 20110717
  7. OMEPRAZOLE [Concomitant]
     Route: 048

REACTIONS (23)
  - Hemiparesis [Recovered/Resolved]
  - Dyspnoea [Not Recovered/Not Resolved]
  - Dizziness [Recovered/Resolved]
  - Decreased appetite [Not Recovered/Not Resolved]
  - Lip blister [Not Recovered/Not Resolved]
  - Dyspepsia [Not Recovered/Not Resolved]
  - Dehydration [Not Recovered/Not Resolved]
  - Burning sensation [Not Recovered/Not Resolved]
  - Myalgia [Not Recovered/Not Resolved]
  - Chills [Not Recovered/Not Resolved]
  - Tremor [Not Recovered/Not Resolved]
  - Hyperhidrosis [Not Recovered/Not Resolved]
  - Insomnia [Not Recovered/Not Resolved]
  - Anxiety [Not Recovered/Not Resolved]
  - Headache [Not Recovered/Not Resolved]
  - Arthralgia [Not Recovered/Not Resolved]
  - Diarrhoea [Not Recovered/Not Resolved]
  - Nausea [Not Recovered/Not Resolved]
  - Rash [Not Recovered/Not Resolved]
  - Asthenia [Recovered/Resolved]
  - Fatigue [Not Recovered/Not Resolved]
  - Anorectal discomfort [Not Recovered/Not Resolved]
  - Pruritus [Not Recovered/Not Resolved]
